FAERS Safety Report 18929504 (Version 1)
Quarter: 2021Q1

REPORT INFORMATION
  Report Type: Spontaneous
  Country: FR (occurrence: FR)
  Receive Date: 20210223
  Receipt Date: 20210223
  Transmission Date: 20210420
  Serious: Yes (Hospitalization)
  Sender: FDA-Public Use
  Company Number: FR-TEVA-2021-FR-1882138

PATIENT
  Age: 61 Year
  Sex: Female

DRUGS (6)
  1. ACIDE ASCORBIQUE [Concomitant]
     Active Substance: ASCORBIC ACID
  2. ASPEGIC [Concomitant]
  3. IRBESARTAN. [Suspect]
     Active Substance: IRBESARTAN
     Indication: HYPERTENSION
     Dosage: 300 MG
     Route: 048
     Dates: start: 201912, end: 202012
  4. TARDYFERON [Concomitant]
     Active Substance: FERROUS SULFATE
  5. NEBIVOLOL (CHLORHYDRATE DE) [Concomitant]
     Active Substance: NEBIVOLOL
  6. CHOLECALCIFEROL [Concomitant]
     Active Substance: CHOLECALCIFEROL

REACTIONS (1)
  - Hepatocellular injury [Recovered/Resolved]

NARRATIVE: CASE EVENT DATE: 20201202
